FAERS Safety Report 4838878-X (Version None)
Quarter: 2005Q4

REPORT INFORMATION
  Report Type: 
  Country: None (occurrence: None)
  Receive Date: 20051129
  Receipt Date: 19890330
  Transmission Date: 20060501
  Serious: Yes (Hospitalization, Other)
  Sender: FDA-Public Use
  Company Number: B003615

PATIENT
  Age: 36 Year
  Sex: Female

DRUGS (7)
  1. CISPLATIN [Suspect]
     Indication: OVARIAN CANCER
     Dosage: DOSE UNIT: MILLIGRAM/SQUARE METER
     Route: 050
     Dates: start: 19850301, end: 19851201
  2. ADRIAMYCIN PFS [Interacting]
     Indication: OVARIAN CANCER
     Dosage: DOSE UNIT: MILLIGRAM/SQUARE METER
     Route: 050
     Dates: start: 19850301, end: 19851201
  3. PHENYTOIN [Interacting]
     Indication: CONVULSION
     Route: 048
     Dates: start: 19850301, end: 19851201
  4. CARBAMAZEPINE [Interacting]
     Indication: CONVULSION
     Route: 048
     Dates: start: 19850301, end: 19851201
  5. VALPROATE SODIUM [Interacting]
     Indication: CONVULSION
     Route: 048
     Dates: start: 19850301, end: 19851201
  6. HEXAMETHYLMELAMINE [Concomitant]
     Indication: OVARIAN CANCER
     Dosage: DOSE UNIT: MILLIGRAM/SQUARE METER
     Route: 048
     Dates: start: 19850301, end: 19851201
  7. CYCLOPHOSPHAMIDE [Concomitant]
     Indication: OVARIAN CANCER
     Dosage: DOSE UNIT: MILLIGRAM/SQUARE METER
     Route: 048
     Dates: start: 19850301, end: 19851201

REACTIONS (2)
  - DRUG INTERACTION [None]
  - GRAND MAL CONVULSION [None]
